FAERS Safety Report 22918892 (Version 2)
Quarter: 2023Q4

REPORT INFORMATION
  Report Type: Spontaneous
  Country: GB (occurrence: GB)
  Receive Date: 20230907
  Receipt Date: 20231006
  Transmission Date: 20240110
  Serious: Yes (Life-Threatening)
  Sender: FDA-Public Use
  Company Number: GB-ROCHE-3314149

PATIENT
  Sex: Female

DRUGS (23)
  1. BENDAMUSTINE [Suspect]
     Active Substance: BENDAMUSTINE
     Indication: Diffuse large B-cell lymphoma
     Dosage: DURATION: 7 DAYS
     Route: 065
     Dates: start: 20140104, end: 20140110
  2. BENDAMUSTINE [Suspect]
     Active Substance: BENDAMUSTINE
     Dosage: DURATION: 20 DAYS
     Route: 065
     Dates: start: 20230201, end: 20230221
  3. DOXORUBICIN [Suspect]
     Active Substance: DOXORUBICIN
     Indication: Diffuse large B-cell lymphoma
     Dosage: DURATION: 6 DAYS
     Route: 065
     Dates: start: 20130103, end: 20130108
  4. DOXORUBICIN [Suspect]
     Active Substance: DOXORUBICIN
     Dosage: DURATION: 151 DAYS
     Route: 065
     Dates: start: 20211201, end: 20220501
  5. LENALIDOMIDE [Suspect]
     Active Substance: LENALIDOMIDE
     Indication: Diffuse large B-cell lymphoma
     Dosage: DURATION: 5 DAYS
     Route: 065
     Dates: start: 20190101, end: 20190105
  6. VINCRISTINE [Suspect]
     Active Substance: VINCRISTINE
     Indication: Diffuse large B-cell lymphoma
     Dosage: DURATION: 6 DAYS
     Route: 065
     Dates: start: 20130103, end: 20130108
  7. VINCRISTINE [Suspect]
     Active Substance: VINCRISTINE
     Dosage: DURATION: 151 DAYS
     Route: 065
     Dates: start: 20211201, end: 20220501
  8. VINCRISTINE SULFATE [Suspect]
     Active Substance: VINCRISTINE SULFATE
     Indication: Diffuse large B-cell lymphoma
     Route: 065
     Dates: start: 20170110
  9. CISPLATIN [Suspect]
     Active Substance: CISPLATIN
     Indication: Diffuse large B-cell lymphoma
     Dosage: DURATION: 30 DAYS
     Route: 065
     Dates: start: 20221101, end: 20221201
  10. DEXAMETHASONE [Suspect]
     Active Substance: DEXAMETHASONE
     Indication: Diffuse large B-cell lymphoma
     Dosage: UNK, DURATION: 30 DAYS
     Route: 065
     Dates: start: 20221101, end: 20221201
  11. CHLORAMBUCIL [Suspect]
     Active Substance: CHLORAMBUCIL
     Indication: Diffuse large B-cell lymphoma
     Dosage: DURATION: 154 DAYS
     Route: 065
     Dates: start: 20210601, end: 20211101
  12. CYCLOPHOSPHAMIDE [Suspect]
     Active Substance: CYCLOPHOSPHAMIDE
     Indication: Diffuse large B-cell lymphoma
     Dosage: DURATION: 6 DAYS
     Route: 065
     Dates: start: 20130103, end: 20130108
  13. CYCLOPHOSPHAMIDE [Suspect]
     Active Substance: CYCLOPHOSPHAMIDE
     Dosage: DURATION: 151 DAYS
     Route: 065
     Dates: start: 20211201, end: 20220501
  14. GEMCITABINE [Suspect]
     Active Substance: GEMCITABINE
     Indication: Diffuse large B-cell lymphoma
     Route: 065
     Dates: start: 20230110
  15. GEMCITABINE [Suspect]
     Active Substance: GEMCITABINE
     Dosage: DURATION: 30 DAYS
     Route: 065
     Dates: start: 20211101, end: 20211201
  16. OXALIPLATIN [Suspect]
     Active Substance: OXALIPLATIN
     Indication: Diffuse large B-cell lymphoma
     Route: 065
     Dates: start: 20230110
  17. PREDNISONE [Suspect]
     Active Substance: PREDNISONE
     Indication: Diffuse large B-cell lymphoma
     Dosage: DURATION: 6 DAYS
     Route: 065
     Dates: start: 20130103, end: 20130108
  18. PREDNISONE [Suspect]
     Active Substance: PREDNISONE
     Dosage: DURATION: 151 DAYS
     Route: 065
     Dates: start: 20211201, end: 20220501
  19. RITUXIMAB [Suspect]
     Active Substance: RITUXIMAB
     Indication: Diffuse large B-cell lymphoma
     Dosage: DURATION: 6 DAYS
     Route: 065
     Dates: start: 20130103, end: 20130108
  20. RITUXIMAB [Suspect]
     Active Substance: RITUXIMAB
     Dosage: DURATION: 151 DAYS
     Route: 065
     Dates: start: 20211201, end: 20220501
  21. RITUXIMAB [Suspect]
     Active Substance: RITUXIMAB
     Dosage: DURATION: 20 DAYS
     Route: 065
     Dates: start: 20230201, end: 20230221
  22. METHOTREXATE [Suspect]
     Active Substance: METHOTREXATE
     Indication: Diffuse large B-cell lymphoma
     Dosage: DURATION: 30 DAYS
     Route: 065
     Dates: start: 20220601, end: 20220701
  23. POLIVY [Suspect]
     Active Substance: POLATUZUMAB VEDOTIN-PIIQ
     Indication: Diffuse large B-cell lymphoma
     Dosage: DURATION: 30 DAYS
     Route: 065
     Dates: start: 20230201, end: 20230221

REACTIONS (1)
  - Diffuse large B-cell lymphoma [Unknown]
